FAERS Safety Report 5225148-3 (Version None)
Quarter: 2007Q1

REPORT INFORMATION
  Report Type: 
  Country: None (occurrence: None)
  Receive Date: 20070131
  Receipt Date: 20070119
  Transmission Date: 20070707
  Serious: Yes (Hospitalization)
  Sender: FDA-Public Use
  Company Number: US-KINGPHARMUSA00001-K200700056

PATIENT

DRUGS (2)
  1. SKELAXIN [Suspect]
     Indication: MYALGIA
     Dosage: 800 MG, TID
     Route: 048
     Dates: start: 20061111, end: 20061115
  2. BLINDED TRIAL MEDICATION [Suspect]
     Indication: INTESTINAL FUNCTIONAL DISORDER
     Dosage: UNK, BID
     Dates: start: 20051208

REACTIONS (3)
  - HYPERHIDROSIS [None]
  - SYNCOPE [None]
  - VOMITING [None]
